FAERS Safety Report 20777824 (Version 1)
Quarter: 2022Q2

REPORT INFORMATION
  Report Type: Spontaneous
  Country: PT (occurrence: PT)
  Receive Date: 20220503
  Receipt Date: 20220503
  Transmission Date: 20220721
  Serious: Yes (Hospitalization, Other)
  Sender: FDA-Public Use
  Company Number: None

PATIENT
  Age: 71 Year
  Sex: Male

DRUGS (25)
  1. VANCOMYCIN [Suspect]
     Active Substance: VANCOMYCIN
     Indication: Staphylococcal infection
  2. MEROPENEM [Suspect]
     Active Substance: MEROPENEM
     Indication: Klebsiella infection
  3. CEFIXIME [Concomitant]
     Active Substance: CEFIXIME
  4. GENTAMICIN [Concomitant]
     Active Substance: GENTAMICIN
  5. IMIPENEM [Concomitant]
     Active Substance: IMIPENEM
  6. AMPICILLIN [Concomitant]
     Active Substance: AMPICILLIN
  7. TAZOBACTAM [Concomitant]
     Active Substance: TAZOBACTAM
  8. METHICILLIN [Concomitant]
     Active Substance: METHICILLIN
  9. AMOXICILLIN [Concomitant]
     Active Substance: AMOXICILLIN
  10. FOSFOMYCIN [Concomitant]
     Active Substance: FOSFOMYCIN
  11. LEVOFLOXACIN [Concomitant]
     Active Substance: LEVOFLOXACIN
  12. TOBRAMYCIN [Concomitant]
     Active Substance: TOBRAMYCIN
  13. AZTREONAM [Concomitant]
     Active Substance: AZTREONAM
  14. AVIBACTAM [Concomitant]
     Active Substance: AVIBACTAM
  15. ERTAPENEM [Concomitant]
     Active Substance: ERTAPENEM
  16. CIPROFLOXACIN [Concomitant]
     Active Substance: CIPROFLOXACIN
  17. AMIKACIN [Concomitant]
     Active Substance: AMIKACIN
  18. CEFUROXIME [Concomitant]
     Active Substance: CEFUROXIME
  19. ESBLANEM [Concomitant]
  20. PIPERACILLIN [Concomitant]
     Active Substance: PIPERACILLIN
  21. COLISTIN [Concomitant]
     Active Substance: COLISTIN
  22. CEFEPIME [Concomitant]
     Active Substance: CEFEPIME HYDROCHLORIDE
  23. NITROFURANTOIN [Concomitant]
     Active Substance: NITROFURANTOIN
  24. CEFTAZIDIME [Concomitant]
     Active Substance: CEFTAZIDIME
  25. TRIMETHOPRIM [Concomitant]
     Active Substance: TRIMETHOPRIM

REACTIONS (2)
  - Drug ineffective [Unknown]
  - Drug resistance [Unknown]
